FAERS Safety Report 13758149 (Version 6)
Quarter: 2017Q4

REPORT INFORMATION
  Report Type: Spontaneous
  Country: US (occurrence: US)
  Receive Date: 20170717
  Receipt Date: 20171011
  Transmission Date: 20180320
  Serious: Yes (Hospitalization, Other)
  Sender: FDA-Public Use
  Company Number: US-GLAXOSMITHKLINE-US2017GSK109328

PATIENT
  Sex: Female

DRUGS (9)
  1. FLOLAN [Suspect]
     Active Substance: EPOPROSTENOL SODIUM
     Dosage: 9 DF, CO
  2. FLOLAN [Suspect]
     Active Substance: EPOPROSTENOL SODIUM
     Indication: PULMONARY ARTERIAL HYPERTENSION
     Dosage: 7 DF, CO
     Route: 042
     Dates: start: 20140808
  3. FLOLAN [Suspect]
     Active Substance: EPOPROSTENOL SODIUM
     Dosage: 3 DF, CO
     Route: 042
  4. FLOLAN [Suspect]
     Active Substance: EPOPROSTENOL SODIUM
     Indication: PULMONARY ARTERIAL HYPERTENSION
     Dosage: UNK
  5. ADCIRCA [Concomitant]
     Active Substance: TADALAFIL
  6. FLOLAN [Suspect]
     Active Substance: EPOPROSTENOL SODIUM
     Dosage: 2 DF, CO
     Route: 042
  7. UPTRAVI [Suspect]
     Active Substance: SELEXIPAG
     Indication: PRODUCT USED FOR UNKNOWN INDICATION
     Dosage: 1000 ?G, BID
     Dates: end: 20170809
  8. FLOLAN [Suspect]
     Active Substance: EPOPROSTENOL SODIUM
     Dosage: UNK
  9. LETAIRIS [Concomitant]
     Active Substance: AMBRISENTAN

REACTIONS (14)
  - Scleroderma [Unknown]
  - Feeling hot [Unknown]
  - Pulmonary fibrosis [Unknown]
  - Nausea [Unknown]
  - Treatment noncompliance [Unknown]
  - Headache [Unknown]
  - Vomiting [Unknown]
  - Adverse drug reaction [Unknown]
  - Dyspnoea [Unknown]
  - Cough [Unknown]
  - Flushing [Unknown]
  - Ill-defined disorder [Unknown]
  - Chest pain [Unknown]
  - Insomnia [Unknown]
